FAERS Safety Report 7596956-9 (Version None)
Quarter: 2011Q3

REPORT INFORMATION
  Report Type: 
  Country: None (occurrence: None)
  Receive Date: 20110708
  Receipt Date: 20110630
  Transmission Date: 20111222
  Serious: Yes (Other)
  Sender: FDA-Public Use
  Company Number: US-JNJFOC-20110701092

PATIENT
  Sex: Male
  Weight: 92.99 kg

DRUGS (1)
  1. SIMPONI [Suspect]
     Indication: PSORIATIC ARTHROPATHY
     Route: 058
     Dates: start: 20110407

REACTIONS (5)
  - DEVICE ISSUE [None]
  - PYREXIA [None]
  - DRUG INEFFECTIVE [None]
  - ABASIA [None]
  - DRUG DOSE OMISSION [None]
